FAERS Safety Report 25529379 (Version 1)
Quarter: 2025Q3

REPORT INFORMATION
  Report Type: Spontaneous
  Country: GB (occurrence: GB)
  Receive Date: 20250708
  Receipt Date: 20250708
  Transmission Date: 20251021
  Serious: Yes (Hospitalization)
  Sender: PFIZER
  Company Number: None

PATIENT
  Age: 74 Year
  Sex: Female

DRUGS (18)
  1. PAXLOVID [Suspect]
     Active Substance: NIRMATRELVIR\RITONAVIR
     Indication: COVID-19 treatment
     Dosage: [NIRMATRELVIR 150 MG]/[RITONAVIR 100 MG]; 2X/DAY
  2. TIOTROPIUM [Concomitant]
     Active Substance: TIOTROPIUM
     Dosage: 18MCG/DOSE INHALER 1 PUFFS OD
  3. PREGABALIN [Concomitant]
     Active Substance: PREGABALIN
     Dosage: 100MG BD
  4. THIAMINE [Concomitant]
     Active Substance: THIAMINE
     Dosage: 100MG TABLETS TDS
  5. LEVETIRACETAM [Concomitant]
     Active Substance: LEVETIRACETAM
     Dosage: 1.25G BD
  6. CELECOXIB [Concomitant]
     Active Substance: CELECOXIB
     Dosage: 200MG BD
  7. CALCIUM CARBONATE\CHOLECALCIFEROL [Concomitant]
     Active Substance: CALCIUM CARBONATE\CHOLECALCIFEROL
     Dosage: 1 TAB BD
  8. SENNA LEAF [Concomitant]
     Active Substance: SENNA LEAF
     Dosage: 15MG ON
  9. SYMBICORT [Concomitant]
     Active Substance: BUDESONIDE\FORMOTEROL FUMARATE DIHYDRATE
     Dosage: 200/6MCG INHALER 2 PUFFS BD
  10. OXYCODONE [Concomitant]
     Active Substance: OXYCODONE
     Dosage: 80MG MR TABLETS BD
  11. OXYCODONE [Concomitant]
     Active Substance: OXYCODONE
     Dosage: 20MG MR TABLETS BD
  12. ASPIRIN [Concomitant]
     Active Substance: ASPIRIN
     Dosage: UNK, 1X/DAY
  13. ZOPICLONE [Concomitant]
     Active Substance: ZOPICLONE
     Dosage: 7.5MG ON
  14. ALBUTEROL [Concomitant]
     Active Substance: ALBUTEROL
  15. MONTELUKAST [Concomitant]
     Active Substance: MONTELUKAST
     Dosage: 10MG ON
  16. MIRTAZAPINE [Concomitant]
     Active Substance: MIRTAZAPINE
     Dosage: 15MG ON
  17. ESOMEPRAZOLE [Concomitant]
     Active Substance: ESOMEPRAZOLE
     Dosage: UNK, 2X/DAY
  18. LETROZOLE [Concomitant]
     Active Substance: LETROZOLE
     Dosage: OD

REACTIONS (2)
  - Reversal of opiate activity [Recovered/Resolved]
  - Toxicity to various agents [Recovered/Resolved]
